FAERS Safety Report 19841807 (Version 1)
Quarter: 2021Q3

REPORT INFORMATION
  Report Type: Spontaneous
  Country: GB (occurrence: GB)
  Receive Date: 20210915
  Receipt Date: 20210915
  Transmission Date: 20211014
  Serious: Yes (Other)
  Sender: FDA-Public Use
  Company Number: NVSC2021GB206955

PATIENT
  Age: 56 Year
  Sex: Female
  Weight: 60.78 kg

DRUGS (2)
  1. OESTROGEL [Concomitant]
     Active Substance: ESTRADIOL
     Indication: PRODUCT USED FOR UNKNOWN INDICATION
     Dosage: UNK
     Route: 065
  2. ESTRADIOL. [Suspect]
     Active Substance: ESTRADIOL
     Indication: HORMONE REPLACEMENT THERAPY
     Dosage: 80 G
     Route: 062
     Dates: start: 20210703

REACTIONS (4)
  - Fatigue [Recovering/Resolving]
  - Night sweats [Recovering/Resolving]
  - Anxiety [Recovering/Resolving]
  - Lethargy [Recovering/Resolving]
